FAERS Safety Report 8178852-1 (Version None)
Quarter: 2012Q1

REPORT INFORMATION
  Report Type: 
  Country: None (occurrence: None)
  Receive Date: 20120302
  Receipt Date: 20120220
  Transmission Date: 20120608
  Serious: Yes (Hospitalization)
  Sender: FDA-Public Use
  Company Number: FR-BRISTOL-MYERS SQUIBB COMPANY-16412538

PATIENT
  Age: 73 Year
  Sex: Male

DRUGS (9)
  1. VENLAFAXINE HCL [Concomitant]
  2. TAMSULOSIN HCL [Concomitant]
  3. FENOFIBRATE [Concomitant]
  4. COUMADIN [Suspect]
  5. DIGOXIN [Concomitant]
  6. FLECAINIDE ACETATE [Concomitant]
  7. GLUCOPHAGE [Suspect]
  8. PANTOPRAZOLE [Concomitant]
  9. ACETAMINOPHEN [Concomitant]

REACTIONS (1)
  - ANAEMIA [None]
